FAERS Safety Report 4284406-X (Version None)
Quarter: 2004Q1

REPORT INFORMATION
  Report Type: 
  Country: None (occurrence: None)
  Receive Date: 20040203
  Receipt Date: 20040123
  Transmission Date: 20041129
  Serious: Yes (Other)
  Sender: FDA-Public Use
  Company Number: FR-BRISTOL-MYERS SQUIBB COMPANY-12486734

PATIENT
  Age: 60 Year
  Sex: Female

DRUGS (2)
  1. APROVEL [Suspect]
     Route: 048
     Dates: start: 20021001, end: 20031217
  2. ELISOR [Suspect]
     Route: 048
     Dates: start: 20021001, end: 20040113

REACTIONS (5)
  - ALANINE AMINOTRANSFERASE INCREASED [None]
  - BLOOD CREATINE PHOSPHOKINASE INCREASED [None]
  - FACE OEDEMA [None]
  - GAMMA-GLUTAMYLTRANSFERASE INCREASED [None]
  - OEDEMA PERIPHERAL [None]
